FAERS Safety Report 25178327 (Version 1)
Quarter: 2025Q2

REPORT INFORMATION
  Report Type: Spontaneous
  Country: US (occurrence: US)
  Receive Date: 20250409
  Receipt Date: 20250409
  Transmission Date: 20250717
  Serious: No
  Sender: BLUEPRINT MEDICINES
  Company Number: US-Blueprint Medicines Corporation-2025-AER-00668

PATIENT
  Age: 72 Year
  Sex: Female

DRUGS (4)
  1. AYVAKIT [Suspect]
     Active Substance: AVAPRITINIB
     Indication: Systemic mastocytosis
     Route: 065
     Dates: start: 202406
  2. Calcitriol Oral Capsule 0.25 MCG [Concomitant]
     Indication: Product used for unknown indication
     Route: 048
  3. Lisinopril Oral Tablet 10 MG [Concomitant]
     Indication: Product used for unknown indication
     Route: 048
  4. Levothyroxine Sodium Oral Tablet 10 [Concomitant]
     Indication: Product used for unknown indication
     Route: 048

REACTIONS (1)
  - Product dose omission issue [Unknown]

NARRATIVE: CASE EVENT DATE: 20250330
